FAERS Safety Report 8474217 (Version 3)
Quarter: 2012Q4

REPORT INFORMATION
  Report Type: 
  Country: CA (occurrence: CA)
  Receive Date: 20120323
  Receipt Date: 20121102
  Transmission Date: 20130627
  Serious: Yes (Hospitalization, Other)
  Sender: FDA-Public Use
  Company Number: PHHY2012CA023326

PATIENT
  Age: 56 Year
  Sex: Female

DRUGS (8)
  1. RASILEZ [Suspect]
     Indication: PROTEINURIA
     Dosage: 150 mg, daily
     Route: 048
     Dates: start: 20111205
  2. NORVASC [Concomitant]
     Dosage: UNK UKN, UNK
  3. GLUCOPHAGE [Concomitant]
     Dosage: UNK UKN, UNK
  4. JANUVIA [Concomitant]
     Dosage: UNK UKN, UNK
  5. ASA [Concomitant]
     Dosage: UNK UKN, UNK
  6. LIPITOR [Concomitant]
     Dosage: UNK UKN, UNK
  7. NEXIUM [Concomitant]
     Dosage: UNK UKN, UNK
  8. AVAPRO [Concomitant]
     Dosage: UNK UKN, UNK

REACTIONS (6)
  - Cerebrovascular accident [Recovered/Resolved with Sequelae]
  - Hemiplegia [Recovered/Resolved with Sequelae]
  - General physical health deterioration [Unknown]
  - Asthenia [Unknown]
  - Fall [Unknown]
  - Nausea [Unknown]
